FAERS Safety Report 7715823-0 (Version None)
Quarter: 2011Q3

REPORT INFORMATION
  Report Type: 
  Country: None (occurrence: None)
  Receive Date: 20110829
  Receipt Date: 20110829
  Transmission Date: 20111222
  Serious: Yes (Hospitalization)
  Sender: FDA-Public Use
  Company Number: None

PATIENT
  Age: 86 Year
  Sex: Male
  Weight: 72 kg

DRUGS (2)
  1. PRADAXA [Suspect]
     Indication: ATRIAL FIBRILLATION
     Dosage: 150MG
     Route: 048
  2. PRADAXA [Suspect]
     Indication: ATRIAL FLUTTER
     Dosage: 150MG
     Route: 048

REACTIONS (4)
  - ASTHENIA [None]
  - HAEMATOCHEZIA [None]
  - HAEMOGLOBIN ABNORMAL [None]
  - INTERNATIONAL NORMALISED RATIO ABNORMAL [None]
